FAERS Safety Report 16729191 (Version 3)
Quarter: 2020Q1

REPORT INFORMATION
  Report Type: Report from Study
  Country: GB (occurrence: GB)
  Receive Date: 20190822
  Receipt Date: 20200106
  Transmission Date: 20200409
  Serious: Yes (Other)
  Sender: FDA-Public Use
  Company Number: GB-SAMSUNG BIOEPIS-SB-2019-14161

PATIENT
  Sex: Female

DRUGS (1)
  1. IMRALDI [Suspect]
     Active Substance: ADALIMUMAB
     Indication: CROHN^S DISEASE
     Route: 058
     Dates: start: 20190514

REACTIONS (4)
  - Sneezing [Recovered/Resolved]
  - Abdominal abscess [Recovered/Resolved]
  - Gastrointestinal injury [Recovering/Resolving]
  - Rhinorrhoea [Recovered/Resolved]
